FAERS Safety Report 5585334-X (Version None)
Quarter: 2008Q1

REPORT INFORMATION
  Report Type: 
  Country: None (occurrence: None)
  Receive Date: 20080104
  Receipt Date: 20080104
  Transmission Date: 20080703
  Serious: Yes (Hospitalization)
  Sender: FDA-Public Use
  Company Number: None

PATIENT
  Age: 90 Year
  Sex: Male

DRUGS (2)
  1. PROMETHAZINE [Suspect]
     Indication: NAUSEA
     Dosage: 12.5MG  ONCE  IV
     Route: 042
     Dates: start: 20071226, end: 20071226
  2. PROMETHAZINE [Suspect]
     Indication: VOMITING
     Dosage: 12.5MG  ONCE  IV
     Route: 042
     Dates: start: 20071226, end: 20071226

REACTIONS (9)
  - ANXIETY [None]
  - CONFUSIONAL STATE [None]
  - GRAND MAL CONVULSION [None]
  - HALLUCINATION [None]
  - HALLUCINATION, VISUAL [None]
  - HYPERTENSION [None]
  - NAUSEA [None]
  - TACHYCARDIA [None]
  - VOMITING [None]
